FAERS Safety Report 13910672 (Version 1)
Quarter: 2017Q3

REPORT INFORMATION
  Report Type: Spontaneous
  Country: US (occurrence: US)
  Receive Date: 20170826
  Receipt Date: 20170826
  Transmission Date: 20171127
  Serious: Yes (Other)
  Sender: FDA-Public Use
  Company Number: None

PATIENT
  Age: 37 Year
  Sex: Female
  Weight: 52 kg

DRUGS (2)
  1. GINSENG SEDASOR [Concomitant]
  2. AZZALURE [Suspect]
     Active Substance: BOTULINUM TOXIN TYPE A
     Indication: SKIN WRINKLING
     Route: 058
     Dates: start: 20160816, end: 20170418

REACTIONS (14)
  - Hypoaesthesia [None]
  - Neck pain [None]
  - Dizziness [None]
  - Discomfort [None]
  - Personality change [None]
  - Vision blurred [None]
  - Feeling abnormal [None]
  - Dyspnoea [None]
  - Panic attack [None]
  - Dry mouth [None]
  - Feeling cold [None]
  - Ear disorder [None]
  - Dysphonia [None]
  - Headache [None]

NARRATIVE: CASE EVENT DATE: 20170518
